FAERS Safety Report 15703979 (Version 1)
Quarter: 2018Q4

REPORT INFORMATION
  Report Type: Spontaneous
  Country: US (occurrence: US)
  Receive Date: 20181127
  Receipt Date: 20181127
  Transmission Date: 20190205
  Serious: No
  Sender: FDA-Public Use
  Company Number: None

PATIENT

DRUGS (1)
  1. DAILY PRENATAL COMBO PACK (TOP CARE) [Suspect]
     Active Substance: DIETARY SUPPLEMENT

REACTIONS (4)
  - Product label confusion [None]
  - Product administration error [None]
  - Maternal exposure during pregnancy [None]
  - Product use complaint [None]

NARRATIVE: CASE EVENT DATE: 2018
